FAERS Safety Report 9579946 (Version 2)
Quarter: 2014Q1

REPORT INFORMATION
  Report Type: Report from Study
  Country: FR (occurrence: FR)
  Receive Date: 20131002
  Receipt Date: 20140108
  Transmission Date: 20141002
  Serious: Yes (Death, Other)
  Sender: FDA-Public Use
  Company Number: FR-ALEXION PHARMACEUTICALS INC.-A201302438

PATIENT
  Age: 35 Year
  Sex: Male

DRUGS (2)
  1. SOLIRIS [Suspect]
     Indication: THROMBOTIC MICROANGIOPATHY
     Dosage: 900MG QW
     Route: 042
     Dates: end: 20130417
  2. SOLIRIS [Suspect]
     Indication: OFF LABEL USE
     Dosage: 1200MG BIMONTHLY

REACTIONS (3)
  - Brain abscess [Fatal]
  - Cerebrovascular accident [Unknown]
  - Off label use [Unknown]
